FAERS Safety Report 5787699-2 (Version None)
Quarter: 2008Q2

REPORT INFORMATION
  Report Type: 
  Country: None (occurrence: None)
  Receive Date: 20080625
  Receipt Date: 20071019
  Transmission Date: 20081010
  Serious: No
  Sender: FDA-Public Use
  Company Number: US-ASTRAZENECA-2007UW24471

PATIENT
  Age: 58 Year
  Sex: Female
  Weight: 79.4 kg

DRUGS (3)
  1. PULMICORT FLEXHALER [Suspect]
     Indication: DYSPNOEA
     Dosage: 90 UG, 6 PUFFS
     Route: 055
  2. 15 OTHER MEDICATIONS [Concomitant]
  3. NEBULIZED MEDICATIONS [Concomitant]

REACTIONS (2)
  - DRUG INEFFECTIVE [None]
  - PEAK EXPIRATORY FLOW RATE [None]
